FAERS Safety Report 12736355 (Version 6)
Quarter: 2018Q2

REPORT INFORMATION
  Report Type: Spontaneous
  Country: US (occurrence: US)
  Receive Date: 20160912
  Receipt Date: 20180612
  Transmission Date: 20180711
  Serious: No
  Sender: FDA-Public Use
  Company Number: US-ACTELION-A-US2016-141678

PATIENT
  Age: 61 Year
  Sex: Female
  Weight: 76.19 kg

DRUGS (8)
  1. LETAIRIS [Concomitant]
     Active Substance: AMBRISENTAN
  2. UPTRAVI [Suspect]
     Active Substance: SELEXIPAG
     Dosage: 800 MCG, BID
     Route: 048
  3. REMODULIN [Concomitant]
     Active Substance: TREPROSTINIL
     Indication: PULMONARY ARTERIAL HYPERTENSION
     Route: 058
  4. UPTRAVI [Suspect]
     Active Substance: SELEXIPAG
     Indication: PULMONARY HYPERTENSION
     Dosage: 400 MCG, BID
     Route: 048
     Dates: start: 20160817
  5. REVATIO [Concomitant]
     Active Substance: SILDENAFIL CITRATE
  6. UPTRAVI [Suspect]
     Active Substance: SELEXIPAG
     Dosage: UNK
     Route: 048
  7. UPTRAVI [Suspect]
     Active Substance: SELEXIPAG
     Dosage: 200 MCG, BID
     Route: 048
     Dates: start: 20160811
  8. UPTRAVI [Suspect]
     Active Substance: SELEXIPAG
     Dosage: 200 MCG, BID
     Route: 048
     Dates: start: 201608

REACTIONS (13)
  - Pain in extremity [Unknown]
  - Dyspnoea exertional [Unknown]
  - Pulmonary arterial hypertension [Unknown]
  - Therapy non-responder [Unknown]
  - Disease progression [Unknown]
  - Headache [Unknown]
  - Pain [Unknown]
  - Heart rate increased [Unknown]
  - Arthralgia [Unknown]
  - Neck pain [Unknown]
  - Pain in jaw [Unknown]
  - Nausea [Unknown]
  - Anxiety [Unknown]

NARRATIVE: CASE EVENT DATE: 20160824
